FAERS Safety Report 25084165 (Version 1)
Quarter: 2025Q1

REPORT INFORMATION
  Report Type: Spontaneous
  Country: US (occurrence: None)
  Receive Date: 20250316
  Receipt Date: 20250316
  Transmission Date: 20250409
  Serious: Yes (Hospitalization)
  Sender: FDA-CTU
  Company Number: None

PATIENT
  Sex: Female

DRUGS (2)
  1. AVONEX [Suspect]
     Active Substance: INTERFERON BETA-1A
     Indication: Multiple sclerosis
     Dosage: 30MCG ONCE WEEKLY INTRAMUSCULARLY
     Route: 030
     Dates: start: 201612
  2. ANTABUSE [Suspect]
     Active Substance: DISULFIRAM

REACTIONS (2)
  - Seizure [None]
  - Contraindicated product administered [None]
